FAERS Safety Report 7267619-4 (Version None)
Quarter: 2011Q1

REPORT INFORMATION
  Report Type: 
  Country: None (occurrence: None)
  Receive Date: 20110201
  Receipt Date: 20110131
  Transmission Date: 20110831
  Serious: Yes (Death)
  Sender: FDA-Public Use
  Company Number: US-ROXANE LABORATORIES, INC.-2011-RO-00087RO

PATIENT
  Sex: Male
  Weight: 118 kg

DRUGS (3)
  1. ETHANOL [Suspect]
  2. BUPRENORPHINE HCL [Suspect]
  3. COCAINE [Suspect]

REACTIONS (1)
  - ACCIDENTAL DEATH [None]
